FAERS Safety Report 16175184 (Version 3)
Quarter: 2019Q3

REPORT INFORMATION
  Report Type: Spontaneous
  Country: FR (occurrence: FR)
  Receive Date: 20190409
  Receipt Date: 20190821
  Transmission Date: 20191004
  Serious: Yes (Death, Hospitalization, Other)
  Sender: FDA-Public Use
  Company Number: FR-BRISTOL-MYERS SQUIBB COMPANY-BMS-2019-034340

PATIENT
  Sex: Male

DRUGS (1)
  1. OPDIVO [Suspect]
     Active Substance: NIVOLUMAB
     Indication: PHARYNGEAL CANCER
     Dosage: 240 MILLIGRAM BI MONTHLY
     Route: 042

REACTIONS (5)
  - Cellulitis [Unknown]
  - Dyspnoea [Fatal]
  - Pyrexia [Unknown]
  - Anaemia [Unknown]
  - Inflammation [Unknown]
